FAERS Safety Report 6055598-7 (Version None)
Quarter: 2009Q1

REPORT INFORMATION
  Report Type: 
  Country: None (occurrence: None)
  Receive Date: 20090123
  Receipt Date: 20090116
  Transmission Date: 20090719
  Serious: Yes (Other)
  Sender: FDA-Public Use
  Company Number: CIO08019575

PATIENT
  Age: 74 Year
  Sex: Female
  Weight: 78 kg

DRUGS (1)
  1. CREST PRO-HEALTH TOOTHPASTE, CLEAN MINT FLAVOR (SODIUM POLUPHOSPHATE 1 [Suspect]
     Dosage: 1 APPLIC, 2/DAY. INTRAORAL
     Route: 028
     Dates: start: 20081117, end: 20081124

REACTIONS (20)
  - DEHYDRATION [None]
  - DYSPHAGIA [None]
  - DYSPHONIA [None]
  - DYSPNOEA [None]
  - FACIAL PAIN [None]
  - FEELING ABNORMAL [None]
  - GINGIVAL PAIN [None]
  - GINGIVAL SWELLING [None]
  - HEADACHE [None]
  - INSOMNIA [None]
  - LIP PAIN [None]
  - LIP SWELLING [None]
  - ORAL PAIN [None]
  - OROPHARYNGEAL PAIN [None]
  - PAIN [None]
  - PARAESTHESIA ORAL [None]
  - PHARYNGEAL ERYTHEMA [None]
  - STOMATITIS [None]
  - SWELLING FACE [None]
  - THROAT IRRITATION [None]
